FAERS Safety Report 7229052-0 (Version None)
Quarter: 2011Q1

REPORT INFORMATION
  Report Type: 
  Country: None (occurrence: None)
  Receive Date: 20110117
  Receipt Date: 20101123
  Transmission Date: 20110831
  Serious: Yes (Hospitalization)
  Sender: FDA-Public Use
  Company Number: US-NAPPMUNDI-USA-2010-0056245

PATIENT
  Sex: Male

DRUGS (1)
  1. OXYCONTIN [Suspect]
     Indication: BACK PAIN
     Dosage: UNK
     Dates: start: 20030101

REACTIONS (5)
  - SPINAL FRACTURE [None]
  - LOWER LIMB FRACTURE [None]
  - SLEEP ATTACKS [None]
  - ROAD TRAFFIC ACCIDENT [None]
  - INSOMNIA [None]
